FAERS Safety Report 7799423-2 (Version None)
Quarter: 2011Q4

REPORT INFORMATION
  Report Type: 
  Country: None (occurrence: None)
  Receive Date: 20111004
  Receipt Date: 20110922
  Transmission Date: 20120403
  Serious: Yes (Disabling, Other)
  Sender: FDA-Public Use
  Company Number: 785191052228

PATIENT
  Age: 53 Year
  Sex: Male
  Weight: 72 kg

DRUGS (2)
  1. ROCURONIUM BROMIDE [Suspect]
     Indication: PRODUCT USED FOR UNKNOWN INDICATION
     Dosage: ONCE, INTRAVENOUS (NOT OTHERWISE SPECIFIED)
     Route: 042
  2. (ANTIPRURITICS,INCL ANTIHIST,ANAESTHET,ETC.) [Concomitant]

REACTIONS (2)
  - ANAPHYLACTIC SHOCK [None]
  - DIVERTICULUM [None]
